FAERS Safety Report 19519467 (Version 1)
Quarter: 2021Q3

REPORT INFORMATION
  Report Type: Spontaneous
  Country: US (occurrence: US)
  Receive Date: 20210712
  Receipt Date: 20210712
  Transmission Date: 20211014
  Serious: No
  Sender: FDA-Public Use
  Company Number: None

PATIENT
  Age: 36 Year
  Sex: Female
  Weight: 117 kg

DRUGS (1)
  1. RITUXIMAB. [Suspect]
     Active Substance: RITUXIMAB
     Indication: MULTIPLE SCLEROSIS
     Dosage: ?          OTHER FREQUENCY:EVERY OTHER WEEK;?
     Route: 042
     Dates: start: 20210709

REACTIONS (4)
  - Ear pruritus [None]
  - Dizziness [None]
  - Head discomfort [None]
  - Palpitations [None]

NARRATIVE: CASE EVENT DATE: 20210709
